FAERS Safety Report 10632208 (Version 1)
Quarter: 2014Q4

REPORT INFORMATION
  Report Type: Spontaneous
  Country: IN (occurrence: None)
  Receive Date: 20141203
  Receipt Date: 20141203
  Transmission Date: 20150529
  Serious: Yes (Hospitalization)
  Sender: FDA-Public Use
  Company Number: CC400239324

PATIENT
  Age: 17 Year
  Sex: Female

DRUGS (1)
  1. CEFTRIAXONE, 1G [Suspect]
     Active Substance: CEFTRIAXONE
     Indication: COLITIS
     Dosage: EVERY 12 HR
     Route: 042

REACTIONS (6)
  - Hypersensitivity vasculitis [None]
  - Acute kidney injury [None]
  - Rash [None]
  - Tubulointerstitial nephritis [None]
  - Haemoglobin decreased [None]
  - Eosinophilia [None]
